FAERS Safety Report 11543020 (Version 2)
Quarter: 2015Q4

REPORT INFORMATION
  Report Type: Spontaneous
  Country: IT (occurrence: IT)
  Receive Date: 20150923
  Receipt Date: 20151021
  Transmission Date: 20160304
  Serious: Yes (Hospitalization)
  Sender: FDA-Public Use
  Company Number: IT-ELI_LILLY_AND_COMPANY-IT201509004239

PATIENT
  Age: 61 Year
  Sex: Female

DRUGS (2)
  1. CISPLATIN. [Concomitant]
     Active Substance: CISPLATIN
     Indication: LUNG NEOPLASM
     Dosage: 120 MG, UNKNOWN
     Route: 042
     Dates: start: 20150723, end: 20150723
  2. ALIMTA [Suspect]
     Active Substance: PEMETREXED DISODIUM
     Indication: LUNG NEOPLASM
     Dosage: 800 MG, CYCLICAL
     Route: 042
     Dates: start: 20150723, end: 20150723

REACTIONS (4)
  - Pericardial effusion [Unknown]
  - Pyrexia [Unknown]
  - Pulmonary embolism [Unknown]
  - Dyspnoea [Unknown]

NARRATIVE: CASE EVENT DATE: 20150809
